FAERS Safety Report 13163940 (Version 1)
Quarter: 2017Q1

REPORT INFORMATION
  Report Type: Spontaneous
  Country: US (occurrence: US)
  Receive Date: 20170130
  Receipt Date: 20170130
  Transmission Date: 20170428
  Serious: No
  Sender: FDA-Public Use
  Company Number: US-ZYDUS-010681

PATIENT
  Age: 47 Year
  Sex: Female

DRUGS (10)
  1. OXYCODONE [Suspect]
     Active Substance: OXYCODONE
     Indication: PAIN IN EXTREMITY
     Route: 048
     Dates: start: 20160128
  2. PREDNISONE/PREDNISONE ACETATE [Concomitant]
     Indication: SINUSITIS
  3. CYCLOBENZAPRINE [Concomitant]
     Active Substance: CYCLOBENZAPRINE
     Indication: PRODUCT USED FOR UNKNOWN INDICATION
  4. CLOPIDOGREL [Concomitant]
     Active Substance: CLOPIDOGREL BISULFATE
     Indication: CEREBROVASCULAR ACCIDENT
  5. SALBUTAMOL [Concomitant]
     Active Substance: ALBUTEROL
     Indication: PRODUCT USED FOR UNKNOWN INDICATION
  6. TOPIRAMATE. [Concomitant]
     Active Substance: TOPIRAMATE
     Indication: SEIZURE
  7. SIMVASTATIN. [Concomitant]
     Active Substance: SIMVASTATIN
     Indication: BLOOD CHOLESTEROL INCREASED
  8. ERGOCALCIFEROL. [Concomitant]
     Active Substance: ERGOCALCIFEROL
     Indication: SUPPLEMENTATION THERAPY
  9. ALPRAZOLAM. [Concomitant]
     Active Substance: ALPRAZOLAM
     Indication: PRODUCT USED FOR UNKNOWN INDICATION
     Route: 065
  10. CEFALEXIN [Concomitant]
     Active Substance: CEPHALEXIN
     Indication: PRODUCT USED FOR UNKNOWN INDICATION

REACTIONS (2)
  - Drug screen negative [Unknown]
  - Drug screen false positive [Unknown]

NARRATIVE: CASE EVENT DATE: 20160201
